FAERS Safety Report 25178680 (Version 1)
Quarter: 2025Q2

REPORT INFORMATION
  Report Type: Spontaneous
  Country: CN (occurrence: None)
  Receive Date: 20250409
  Receipt Date: 20250409
  Transmission Date: 20250716
  Serious: Yes (Death)
  Sender: INCYTE
  Company Number: CN-002147023-NVSC2025CN055429

PATIENT

DRUGS (1)
  1. RUXOLITINIB [Suspect]
     Active Substance: RUXOLITINIB
     Indication: Myelofibrosis
     Dosage: 5 MG, BID (EACH TIME)
     Route: 065

REACTIONS (1)
  - Gastric varices haemorrhage [Fatal]
